FAERS Safety Report 13742624 (Version 4)
Quarter: 2017Q3

REPORT INFORMATION
  Report Type: Spontaneous
  Country: JP (occurrence: JP)
  Receive Date: 20170711
  Receipt Date: 20170724
  Transmission Date: 20171127
  Serious: Yes (Other)
  Sender: FDA-Public Use
  Company Number: PHJP2017JP022158

PATIENT
  Age: 73 Year
  Sex: Male

DRUGS (3)
  1. BUCILLAMINE [Concomitant]
     Active Substance: BUCILLAMINE
     Indication: RHEUMATOID ARTHRITIS
     Dosage: 200 MG, QD
     Route: 048
  2. PREDNISOLONE ACETATE. [Concomitant]
     Active Substance: PREDNISOLONE ACETATE
     Indication: ORGANISING PNEUMONIA
     Dosage: UNK
     Route: 048
  3. CICLOSPORIN [Suspect]
     Active Substance: CYCLOSPORINE
     Indication: ORGANISING PNEUMONIA
     Dosage: 150 MG, QD
     Route: 065

REACTIONS (4)
  - Histiocytosis haematophagic [Recovering/Resolving]
  - Product use in unapproved indication [Unknown]
  - Drug-induced liver injury [Recovering/Resolving]
  - Immunosuppressant drug level increased [Unknown]
